FAERS Safety Report 9364971 (Version 2)
Quarter: 2013Q4

REPORT INFORMATION
  Report Type: Spontaneous
  Country: US (occurrence: US)
  Receive Date: 20130624
  Receipt Date: 20131210
  Transmission Date: 20140711
  Serious: Yes (Hospitalization)
  Sender: FDA-Public Use
  Company Number: US-B.I. PHARMACEUTICALS,INC./RIDGEFIELD-2013-BI-17753BP

PATIENT
  Sex: Male
  Weight: 68.04 kg

DRUGS (18)
  1. PRADAXA [Suspect]
     Indication: ANTICOAGULANT THERAPY
     Dosage: 300 MG
     Route: 048
     Dates: start: 20110719, end: 20110822
  2. PRADAXA [Suspect]
     Indication: ARRHYTHMIA
  3. ASPIRIN [Suspect]
     Dosage: 81 MG
     Route: 048
     Dates: end: 20110822
  4. ACETAMINOPHEN\HYDROCODONE [Concomitant]
     Indication: PAIN
     Route: 048
  5. AMIODARONE [Concomitant]
     Dosage: 400 MG
     Route: 048
  6. BENAZEPRIL [Concomitant]
     Dosage: 40 MG
     Route: 048
  7. CARVEDILOL [Concomitant]
     Dosage: 50 MG
     Route: 048
  8. FUROSEMIDE [Concomitant]
     Dosage: 80 MG
     Route: 048
  9. OMEPRAZOLE [Concomitant]
     Dosage: 20 MG
  10. POTASSIUM CHLORIDE [Concomitant]
     Dosage: 20 MEQ
     Route: 048
  11. SERTRALINE [Concomitant]
     Dosage: 50 MG
     Route: 048
  12. SIMVASTATIN [Concomitant]
     Dosage: 40 MG
     Route: 048
  13. SPIRONOLACTONE [Concomitant]
     Dosage: 12.5 MG
  14. TEMAZEPAM [Concomitant]
     Dosage: 15 MG
     Route: 048
  15. PEPTO BISMOL [Concomitant]
     Indication: DYSPEPSIA
  16. ALKA SELTZER [Concomitant]
     Indication: DYSPEPSIA
  17. DUONEB [Concomitant]
  18. OXYGEN [Concomitant]

REACTIONS (5)
  - Upper gastrointestinal haemorrhage [Recovered/Resolved]
  - Normochromic normocytic anaemia [Recovered/Resolved]
  - International normalised ratio increased [Unknown]
  - Peptic ulcer [Unknown]
  - Renal failure acute [Unknown]
